FAERS Safety Report 16266010 (Version 1)
Quarter: 2019Q2

REPORT INFORMATION
  Report Type: Report from Study
  Country: US (occurrence: US)
  Receive Date: 20190502
  Receipt Date: 20190502
  Transmission Date: 20190711
  Serious: Yes (Other)
  Sender: FDA-Public Use
  Company Number: PHEH2019US018403

PATIENT
  Sex: Female

DRUGS (1)
  1. KYMRIAH [Suspect]
     Active Substance: TISAGENLECLEUCEL
     Indication: PRODUCT USED FOR UNKNOWN INDICATION
     Dosage: UNK, ONCE/SINGLE
     Route: 065
     Dates: start: 20171107

REACTIONS (2)
  - Cytokine release syndrome [Unknown]
  - Pyrexia [Unknown]
